FAERS Safety Report 14777400 (Version 4)
Quarter: 2018Q2

REPORT INFORMATION
  Report Type: Report from Study
  Country: US (occurrence: US)
  Receive Date: 20180419
  Receipt Date: 20180530
  Transmission Date: 20180711
  Serious: Yes (Hospitalization, Other)
  Sender: FDA-Public Use
  Company Number: US-GILEAD-2018-0334029

PATIENT
  Age: 24 Year
  Sex: Female

DRUGS (2)
  1. FLOLAN [Concomitant]
     Active Substance: EPOPROSTENOL SODIUM
  2. AMBRISENTAN [Suspect]
     Active Substance: AMBRISENTAN
     Indication: PRODUCT USED FOR UNKNOWN INDICATION
     Dosage: 10 MG, QD
     Route: 065
     Dates: start: 201605

REACTIONS (6)
  - Dehydration [Unknown]
  - Dyspnoea [Unknown]
  - Acute kidney injury [Unknown]
  - Diarrhoea [Unknown]
  - Heart rate increased [Unknown]
  - Weight decreased [Unknown]
